FAERS Safety Report 20183088 (Version 3)
Quarter: 2022Q1

REPORT INFORMATION
  Report Type: Spontaneous
  Country: SG (occurrence: SG)
  Receive Date: 20211214
  Receipt Date: 20220121
  Transmission Date: 20220424
  Serious: Yes (Death, Other)
  Sender: FDA-Public Use
  Company Number: SG-GLAXOSMITHKLINE-SG2021APC254162

PATIENT
  Age: 89 Year
  Sex: Female
  Weight: 33.9 kg

DRUGS (2)
  1. SOTROVIMAB [Suspect]
     Active Substance: SOTROVIMAB
     Indication: COVID-19 pneumonia
     Dosage: 500 MG, ONE TIME
     Dates: start: 20211105, end: 20211105
  2. SOTROVIMAB [Suspect]
     Active Substance: SOTROVIMAB
     Indication: Respiratory failure

REACTIONS (6)
  - Atrial fibrillation [Fatal]
  - Hypotension [Fatal]
  - Heart rate increased [Fatal]
  - Blood pressure immeasurable [Fatal]
  - COVID-19 pneumonia [Fatal]
  - Off label use [Unknown]

NARRATIVE: CASE EVENT DATE: 20211105
